FAERS Safety Report 5741612-2 (Version None)
Quarter: 2008Q2

REPORT INFORMATION
  Report Type: 
  Country: None (occurrence: None)
  Receive Date: 20080519
  Receipt Date: 20070605
  Transmission Date: 20081010
  Serious: Yes (Death)
  Sender: FDA-Public Use
  Company Number: US-BAYER-US-2007-021549

PATIENT

DRUGS (10)
  1. FLUDARA [Suspect]
     Indication: BONE MARROW CONDITIONING REGIMEN
     Route: 042
  2. CYCLOPHOSPHAMIDE [Suspect]
     Indication: BONE MARROW CONDITIONING REGIMEN
     Route: 042
  3. ANTIEMETICS AND ANTINAUSEANTS [Concomitant]
     Indication: PROPHYLAXIS OF NAUSEA AND VOMITING
  4. TACROLIMUS [Concomitant]
     Indication: PROPHYLAXIS AGAINST GRAFT VERSUS HOST DISEASE
     Route: 042
  5. MYCOPHENOLATE MOFETIL [Concomitant]
     Indication: PROPHYLAXIS AGAINST GRAFT VERSUS HOST DISEASE
     Route: 048
  6. NEUPOGEN [Concomitant]
     Indication: COLONY STIMULATING FACTOR THERAPY
     Route: 042
  7. ACYCLOVIR SODIUM [Concomitant]
     Indication: INFECTION PROPHYLAXIS
  8. FLUCONAZOLE [Concomitant]
     Indication: INFECTION PROPHYLAXIS
  9. QUINOLONE ANTIBACTERIALS [Concomitant]
     Indication: INFECTION PROPHYLAXIS
  10. SULFAMETHOXAZOLE AND TRIMETHOPRIM [Concomitant]
     Indication: INFECTION PROPHYLAXIS
     Route: 048

REACTIONS (1)
  - TRANSPLANT FAILURE [None]
